FAERS Safety Report 8000642-0 (Version None)
Quarter: 2011Q4

REPORT INFORMATION
  Report Type: 
  Country: None (occurrence: None)
  Receive Date: 20111222
  Receipt Date: 20110926
  Transmission Date: 20120403
  Serious: No
  Sender: FDA-Public Use
  Company Number: US-BAYER-2011-091199

PATIENT
  Sex: Female

DRUGS (2)
  1. AVELOX [Suspect]
     Indication: LOCALISED INFECTION
     Dosage: 400 MG, QD
     Route: 048
     Dates: start: 20110101
  2. AVELOX [Suspect]
     Indication: BRONCHITIS
     Dosage: 400 MG, QD
     Route: 048
     Dates: start: 20110301, end: 20110301

REACTIONS (2)
  - ARTHRALGIA [None]
  - NO ADVERSE EVENT [None]
